FAERS Safety Report 4438368-2 (Version None)
Quarter: 2004Q3

REPORT INFORMATION
  Report Type: 
  Country: None (occurrence: None)
  Receive Date: 20040831
  Receipt Date: 20040728
  Transmission Date: 20050211
  Serious: No
  Sender: FDA-Public Use
  Company Number: US-GLAXOSMITHKLINE-A0520077A

PATIENT
  Age: 56 Year
  Sex: Female

DRUGS (2)
  1. WELLBUTRIN XL [Suspect]
     Indication: MENOPAUSE
     Dosage: 150MG PER DAY
     Route: 048
     Dates: start: 20040718
  2. NO CONCURRENT MEDICATION [Concomitant]

REACTIONS (6)
  - CHEST PAIN [None]
  - DEPRESSION [None]
  - HEADACHE [None]
  - HOT FLUSH [None]
  - NERVOUSNESS [None]
  - VISION BLURRED [None]
